FAERS Safety Report 9029398 (Version 1)
Quarter: 2013Q1

REPORT INFORMATION
  Report Type: Spontaneous
  Country: FR (occurrence: FR)
  Receive Date: 20130125
  Receipt Date: 20130125
  Transmission Date: 20140127
  Serious: Yes (Disabling)
  Sender: FDA-Public Use
  Company Number: FR-BRISTOL-MYERS SQUIBB COMPANY-17295288

PATIENT
  Age: 3 Year
  Sex: 0

DRUGS (2)
  1. SUSTIVA [Suspect]
     Route: 064
  2. TRUVADA [Suspect]
     Route: 064

REACTIONS (4)
  - Developmental delay [Not Recovered/Not Resolved]
  - Speech disorder developmental [Not Recovered/Not Resolved]
  - Abnormal behaviour [Not Recovered/Not Resolved]
  - Agitation [Not Recovered/Not Resolved]
